FAERS Safety Report 9808776 (Version 2)
Quarter: 2014Q1

REPORT INFORMATION
  Report Type: Spontaneous
  Country: GB (occurrence: GB)
  Receive Date: 20140110
  Receipt Date: 20140311
  Transmission Date: 20141002
  Serious: Yes (Other)
  Sender: FDA-Public Use
  Company Number: GB-INCYTE CORPORATION-2014IN000032

PATIENT
  Age: 62 Year
  Sex: Female
  Weight: 117 kg

DRUGS (21)
  1. JAKAVI [Suspect]
     Indication: MYELOFIBROSIS
     Dosage: 20 MG BID
     Route: 048
     Dates: start: 20130522, end: 201401
  2. JAKAVI [Suspect]
     Dosage: UNK UNK, UNK
     Route: 048
  3. ALLOPURINOL [Concomitant]
     Dosage: UNK MG, UNK
  4. ASPIRIN [Concomitant]
     Dosage: UNK MG, UNK
  5. BETAHISTINE [Concomitant]
     Dosage: UNK MG, UNK
  6. CAPTOPRIL [Concomitant]
     Dosage: UNK MG, UNK
  7. DOXAZOSIN [Concomitant]
     Dosage: UNK MG, UNK
  8. FOLIC ACID [Concomitant]
     Dosage: UNK MG, UNK
  9. FOSTAIR [Concomitant]
     Dosage: UNK ?G, UNK
  10. FUROSEMIDE [Concomitant]
     Dosage: 40 UNK, UNK
  11. METFORMIN [Concomitant]
     Dosage: UNK MG, UNK
  12. MIRTAZAPINE [Concomitant]
     Dosage: UNK MG, UNK
  13. MONTELUKAST [Concomitant]
     Dosage: UNK MG, UNK
  14. PANTOPRAZOLE [Concomitant]
     Dosage: UNK MG, UNK
  15. PEPPERMINT OIL [Concomitant]
     Dosage: UNK ML, UNK
  16. RANITIDINE [Concomitant]
     Dosage: UNK MG, UNK
  17. SALBUTAMOL [Concomitant]
     Dosage: 100 ?G, UNK
  18. SIMVASTATIN [Concomitant]
     Dosage: UNK MG, UNK
  19. ALFACALCIDOL [Concomitant]
     Dosage: UNK ?G, UNK
  20. COLECALCIFEROL [Concomitant]
     Dosage: UNK UT, UNK
  21. LEVOTHYROXINE [Concomitant]
     Dosage: 100 ?G, UNK

REACTIONS (1)
  - Liver function test abnormal [Recovering/Resolving]
